FAERS Safety Report 8325331-4 (Version None)
Quarter: 2012Q2

REPORT INFORMATION
  Report Type: 
  Country: None (occurrence: None)
  Receive Date: 20120501
  Receipt Date: 20120416
  Transmission Date: 20120825
  Serious: Yes (Hospitalization, Other)
  Sender: FDA-Public Use
  Company Number: US-ROCHE-1062859

PATIENT

DRUGS (2)
  1. INTERFERON ALFA [Suspect]
     Indication: HEPATITIS C
     Route: 058
  2. COPEGUS [Suspect]
     Indication: HEPATITIS C
     Dosage: WEIGHT-BASED 1000-1200 MG/DAY

REACTIONS (7)
  - HYPOTENSION [None]
  - DEHYDRATION [None]
  - LOSS OF CONSCIOUSNESS [None]
  - ANAEMIA [None]
  - FATIGUE [None]
  - METABOLIC DISORDER [None]
  - VENTRICULAR TACHYCARDIA [None]
